FAERS Safety Report 21476853 (Version 2)
Quarter: 2022Q4

REPORT INFORMATION
  Report Type: Report from Study
  Country: US (occurrence: US)
  Receive Date: 20221019
  Receipt Date: 20221109
  Transmission Date: 20230112
  Serious: Yes (Hospitalization, Other)
  Sender: FDA-Public Use
  Company Number: US-BoehringerIngelheim-2021-BI-138801

PATIENT
  Age: 76 Year
  Sex: Female

DRUGS (8)
  1. OFEV [Suspect]
     Active Substance: NINTEDANIB
     Indication: Pulmonary fibrosis
     Route: 048
     Dates: start: 20211103
  2. OFEV [Suspect]
     Active Substance: NINTEDANIB
     Indication: Interstitial lung disease
     Route: 048
     Dates: start: 202111
  3. OFEV [Suspect]
     Active Substance: NINTEDANIB
     Route: 048
     Dates: start: 20220128
  4. OFEV [Suspect]
     Active Substance: NINTEDANIB
     Route: 048
     Dates: end: 20220718
  5. OFEV [Suspect]
     Active Substance: NINTEDANIB
     Route: 048
  6. NADOLOL [Concomitant]
     Active Substance: NADOLOL
     Indication: Product used for unknown indication
  7. PROAIR HFA [Concomitant]
     Active Substance: ALBUTEROL SULFATE
     Indication: Product used for unknown indication
  8. trelegy (DDI) [Concomitant]
     Indication: Product used for unknown indication

REACTIONS (23)
  - Dehydration [Unknown]
  - Dizziness [Unknown]
  - Sepsis [Unknown]
  - Renal disorder [Unknown]
  - Red blood cell count decreased [Unknown]
  - White blood cell count increased [Unknown]
  - Taste disorder [Not Recovered/Not Resolved]
  - Herpes zoster [Recovered/Resolved]
  - Nausea [Recovered/Resolved]
  - Vomiting [Recovered/Resolved]
  - Diarrhoea [Recovered/Resolved]
  - Diarrhoea [Unknown]
  - Secretion discharge [Unknown]
  - Nausea [Unknown]
  - Gastroenteritis viral [Unknown]
  - Immune system disorder [Unknown]
  - Herpes zoster [Unknown]
  - Malaise [Unknown]
  - Salivary hypersecretion [Not Recovered/Not Resolved]
  - Oral candidiasis [Not Recovered/Not Resolved]
  - Post herpetic neuralgia [Unknown]
  - Drug interaction [Unknown]
  - Diarrhoea [Recovered/Resolved]

NARRATIVE: CASE EVENT DATE: 20211201
